FAERS Safety Report 10601245 (Version 1)
Quarter: 2014Q4

REPORT INFORMATION
  Report Type: Spontaneous
  Country: FR (occurrence: FR)
  Receive Date: 20141124
  Receipt Date: 20141124
  Transmission Date: 20150529
  Serious: Yes (Hospitalization, Other)
  Sender: FDA-Public Use
  Company Number: PHHY2014FR150129

PATIENT
  Age: 51 Year
  Sex: Male
  Weight: 80 kg

DRUGS (9)
  1. ATGAM [Suspect]
     Active Substance: EQUINE THYMOCYTE IMMUNE GLOBULIN
     Indication: BONE MARROW FAILURE
     Dosage: 40 MG/KG, DAILY
     Route: 042
     Dates: start: 20130330, end: 20130402
  2. REVOLADE [Concomitant]
     Active Substance: ELTROMBOPAG
     Indication: PRODUCT USED FOR UNKNOWN INDICATION
     Route: 065
     Dates: start: 20131211
  3. CICLOSPORIN [Suspect]
     Active Substance: CYCLOSPORINE
     Dosage: 300 MG, UNK
     Route: 065
  4. NILEVAR [Concomitant]
     Active Substance: NORETHANDROLONE
     Indication: BONE MARROW FAILURE
     Dosage: 90 MG, QD
     Route: 065
     Dates: start: 201211, end: 20130319
  5. CICLOSPORIN [Suspect]
     Active Substance: CYCLOSPORINE
     Dosage: BETWEEN 200 AND 400 MG
     Route: 065
  6. POLARAMINE [Concomitant]
     Active Substance: DEXCHLORPHENIRAMINE MALEATE
     Indication: PRODUCT USED FOR UNKNOWN INDICATION
     Dosage: 1 DF, UNK
     Route: 042
  7. PERFALGAN [Concomitant]
     Active Substance: ACETAMINOPHEN
     Indication: PRODUCT USED FOR UNKNOWN INDICATION
     Route: 042
  8. SOLU-MEDROL [Suspect]
     Active Substance: METHYLPREDNISOLONE SODIUM SUCCINATE
     Indication: BONE MARROW FAILURE
     Dosage: 0.5 MG/KG, DAILY
     Route: 065
  9. CICLOSPORIN [Suspect]
     Active Substance: CYCLOSPORINE
     Indication: BONE MARROW FAILURE
     Dosage: 100 MG, QD
     Route: 065
     Dates: start: 20120324, end: 20130129

REACTIONS (29)
  - Thrombosis [Recovered/Resolved]
  - Oedema peripheral [Recovering/Resolving]
  - Amyotrophy [Unknown]
  - Limb discomfort [Recovered/Resolved]
  - Reticulocyte count decreased [Unknown]
  - Staphylococcal infection [Unknown]
  - Haematoma [Recovered/Resolved]
  - Sodium retention [Recovering/Resolving]
  - Hypertension [Recovering/Resolving]
  - White blood cell count decreased [Unknown]
  - Pulmonary oedema [Recovering/Resolving]
  - Hypotension [Unknown]
  - Platelet count decreased [Unknown]
  - Haemoglobin decreased [Unknown]
  - Folliculitis [Recovered/Resolved]
  - Neutrophil count decreased [Unknown]
  - Diabetes mellitus [Recovering/Resolving]
  - Depression [Recovering/Resolving]
  - Malaise [Unknown]
  - Erysipelas [Unknown]
  - Atrial fibrillation [Recovered/Resolved]
  - Acute kidney injury [Recovering/Resolving]
  - Pyrexia [Unknown]
  - Treatment failure [Unknown]
  - Staphylococcal bacteraemia [Recovered/Resolved]
  - Urinary tract infection [Unknown]
  - Pain [Recovered/Resolved]
  - Back pain [Unknown]
  - Brain natriuretic peptide increased [Recovered/Resolved]

NARRATIVE: CASE EVENT DATE: 20130412
